FAERS Safety Report 7434286-6 (Version None)
Quarter: 2011Q2

REPORT INFORMATION
  Report Type: 
  Country: None (occurrence: None)
  Receive Date: 20110425
  Receipt Date: 20110419
  Transmission Date: 20111010
  Serious: No
  Sender: FDA-Public Use
  Company Number: US-PFIZER INC-2011085826

PATIENT
  Sex: Female
  Weight: 49.887 kg

DRUGS (1)
  1. ADVIL LIQUI-GELS [Suspect]
     Indication: ARTHRITIS
     Dosage: 800 MG, 1X/DAY
     Route: 048

REACTIONS (5)
  - RESTLESSNESS [None]
  - NERVOUSNESS [None]
  - ANXIETY [None]
  - INSOMNIA [None]
  - DRUG ADMINISTRATION ERROR [None]
